FAERS Safety Report 23000560 (Version 3)
Quarter: 2023Q4

REPORT INFORMATION
  Report Type: Spontaneous
  Country: US (occurrence: US)
  Receive Date: 20230928
  Receipt Date: 20231108
  Transmission Date: 20240109
  Serious: No
  Sender: FDA-Public Use
  Company Number: US-PFIZER INC-202300295234

PATIENT
  Age: 4 Year
  Sex: Male
  Weight: 17.69 kg

DRUGS (2)
  1. GENOTROPIN [Suspect]
     Active Substance: SOMATROPIN
     Indication: Growth disorder
     Dosage: ONE INJECTION EVERY EVENING
     Dates: start: 2022
  2. GENOTROPIN [Suspect]
     Active Substance: SOMATROPIN
     Indication: Renal disorder

REACTIONS (2)
  - Wrong technique in device usage process [Unknown]
  - Device electrical finding [Unknown]
